FAERS Safety Report 7947056-7 (Version None)
Quarter: 2011Q4

REPORT INFORMATION
  Report Type: 
  Country: None (occurrence: None)
  Receive Date: 20111129
  Receipt Date: 20110912
  Transmission Date: 20120403
  Serious: Yes (Other)
  Sender: FDA-Public Use
  Company Number: US-ASTRAZENECA-2011SE54577

PATIENT
  Age: 70 Year
  Sex: Male
  Weight: 158.8 kg

DRUGS (3)
  1. VIMOVO [Suspect]
     Route: 048
  2. PLAVIX [Concomitant]
  3. ASPIRIN [Concomitant]

REACTIONS (1)
  - GASTROINTESTINAL HAEMORRHAGE [None]
